FAERS Safety Report 11997388 (Version 5)
Quarter: 2020Q3

REPORT INFORMATION
  Report Type: Report from Study
  Country: JP (occurrence: JP)
  Receive Date: 20160203
  Receipt Date: 20200926
  Transmission Date: 20201102
  Serious: Yes (Hospitalization, Other)
  Sender: FDA-Public Use
  Company Number: JP-AMGEN-JPNCT2013093936

PATIENT
  Age: 62 Year
  Sex: Male
  Weight: 70 kg

DRUGS (13)
  1. ROMIPLOSTIM [Suspect]
     Active Substance: ROMIPLOSTIM
     Dosage: 1 MICROGRAM/KILOGRAM, 1X/WEEK
     Route: 058
     Dates: start: 20121017
  2. KENEI G [Concomitant]
     Active Substance: GLYCERIN
     Indication: PREOPERATIVE CARE
     Dosage: UNK
     Route: 054
  3. SOLDEM 3A [Concomitant]
     Active Substance: CARBOHYDRATES\POTASSIUM CHLORIDE\SODIUM CHLORIDE\SODIUM LACTATE
     Indication: FLUID REPLACEMENT
     Dosage: UNK
     Route: 041
  4. FLUMARIN [Concomitant]
     Indication: PROPHYLAXIS
     Dosage: UNK
     Route: 065
  5. MEDICON [DEXTROMETHORPHAN HYDROBROMIDE] [Concomitant]
     Active Substance: DEXTROMETHORPHAN HYDROBROMIDE
     Indication: COUGH
     Dosage: UNK
     Route: 048
  6. PRIMPERAN [Concomitant]
     Active Substance: METOCLOPRAMIDE HYDROCHLORIDE
     Indication: PROPHYLAXIS
     Dosage: UNK
     Route: 065
  7. PENTAGIN [PENTAZOCINE HYDROCHLORIDE] [Concomitant]
     Indication: PRODUCT USED FOR UNKNOWN INDICATION
     Dosage: UNK
     Route: 065
  8. ZOSYN [Concomitant]
     Active Substance: PIPERACILLIN SODIUM\TAZOBACTAM SODIUM
     Indication: PRODUCT USED FOR UNKNOWN INDICATION
     Dosage: UNK
     Route: 042
  9. RIZE [Concomitant]
     Active Substance: CLOTIAZEPAM
     Indication: INSOMNIA
     Dosage: UNK
     Route: 048
  10. VEEN?F [Concomitant]
     Active Substance: CALCIUM CHLORIDE\MAGNESIUM CHLORIDE\POTASSIUM CHLORIDE\SODIUM ACETATE\SODIUM CHLORIDE
     Indication: PRODUCT USED FOR UNKNOWN INDICATION
     Dosage: UNK
     Route: 041
  11. ROMIPLOSTIM [Suspect]
     Active Substance: ROMIPLOSTIM
     Indication: IMMUNE THROMBOCYTOPENIA
     Dosage: 1 MICROGRAM/KILOGRAM, 1X/WEEK
     Route: 058
     Dates: start: 20110427, end: 20120926
  12. GASTER [Concomitant]
     Active Substance: FAMOTIDINE
     Indication: PROPHYLAXIS
     Dosage: UNK
     Route: 065
  13. ROPION [Concomitant]
     Active Substance: FLURBIPROFEN AXETIL
     Indication: PRODUCT USED FOR UNKNOWN INDICATION
     Dosage: UNK
     Route: 042

REACTIONS (9)
  - Postoperative wound infection [Recovered/Resolved]
  - Procedural pain [Recovered/Resolved]
  - Cough [Recovered/Resolved]
  - Hyperuricaemia [Not Recovered/Not Resolved]
  - Nasopharyngitis [Recovered/Resolved]
  - Appendicitis [Recovered/Resolved]
  - Insomnia [Recovered/Resolved]
  - Prostatitis [Recovered/Resolved]
  - Rhinitis allergic [Not Recovered/Not Resolved]

NARRATIVE: CASE EVENT DATE: 20110630
